FAERS Safety Report 13055031 (Version 3)
Quarter: 2017Q1

REPORT INFORMATION
  Report Type: Spontaneous
  Country: US (occurrence: US)
  Receive Date: 20161222
  Receipt Date: 20170317
  Transmission Date: 20170428
  Serious: Yes (Other)
  Sender: FDA-Public Use
  Company Number: US-LUNDBECK-DKLU2024091

PATIENT
  Sex: Male

DRUGS (11)
  1. NORTHERA [Suspect]
     Active Substance: DROXIDOPA
     Route: 065
  2. XANAX [Concomitant]
     Active Substance: ALPRAZOLAM
     Indication: PRODUCT USED FOR UNKNOWN INDICATION
     Route: 048
     Dates: start: 20161005
  3. EUCALYPTUS MENTHOL [Concomitant]
     Indication: COUGH
     Route: 065
     Dates: start: 20161201
  4. NEURONTIN [Concomitant]
     Active Substance: GABAPENTIN
     Indication: PRODUCT USED FOR UNKNOWN INDICATION
     Route: 048
  5. NORTHERA [Suspect]
     Active Substance: DROXIDOPA
     Indication: PRODUCT USED FOR UNKNOWN INDICATION
     Dosage: SCHEDULE C
     Route: 048
     Dates: start: 20161102
  6. NORTHERA [Suspect]
     Active Substance: DROXIDOPA
     Route: 048
     Dates: start: 20161229
  7. SYMMETREL [Concomitant]
     Active Substance: AMANTADINE HYDROCHLORIDE
     Indication: PRODUCT USED FOR UNKNOWN INDICATION
     Route: 048
     Dates: start: 20160720
  8. KLONOPIN [Concomitant]
     Active Substance: CLONAZEPAM
     Indication: PRODUCT USED FOR UNKNOWN INDICATION
     Route: 048
  9. AMANTADINE [Suspect]
     Active Substance: AMANTADINE
     Indication: PRODUCT USED FOR UNKNOWN INDICATION
     Route: 065
  10. EUCALYPTUS MENTHOL [Concomitant]
     Indication: OROPHARYNGEAL PAIN
  11. CYMBALTA [Suspect]
     Active Substance: DULOXETINE HYDROCHLORIDE
     Indication: PRODUCT USED FOR UNKNOWN INDICATION
     Route: 048
     Dates: start: 20160720

REACTIONS (23)
  - Loss of consciousness [Unknown]
  - Insomnia [Recovered/Resolved]
  - Functional gastrointestinal disorder [Recovered/Resolved]
  - Vision blurred [Recovered/Resolved]
  - Drug dose omission [Unknown]
  - Pneumonia aspiration [Recovered/Resolved]
  - Condition aggravated [Unknown]
  - Dysphonia [Recovered/Resolved]
  - Dyspnoea [Unknown]
  - Fine motor skill dysfunction [Unknown]
  - Stridor [Recovered/Resolved]
  - Diplopia [Unknown]
  - Bladder disorder [Recovered/Resolved]
  - Sexual dysfunction [Recovered/Resolved]
  - Dysarthria [Recovered/Resolved]
  - Ataxia [Recovered/Resolved]
  - Balance disorder [Unknown]
  - Dysphagia [Unknown]
  - Dizziness [Recovered/Resolved]
  - Akinesia [Recovered/Resolved]
  - Posture abnormal [Recovered/Resolved]
  - Disorientation [Recovered/Resolved]
  - Presyncope [Unknown]
